FAERS Safety Report 4869482-5 (Version None)
Quarter: 2005Q4

REPORT INFORMATION
  Report Type: 
  Country: None (occurrence: None)
  Receive Date: 20051230
  Receipt Date: 20051223
  Transmission Date: 20060501
  Serious: Yes (Life-Threatening, Other)
  Sender: FDA-Public Use
  Company Number: US-ABBOTT-05P-163-0320679-00

PATIENT
  Sex: Female
  Weight: 61.29 kg

DRUGS (4)
  1. VICODIN [Suspect]
     Indication: POSTOPERATIVE ANALGESIA
     Route: 048
     Dates: start: 20050214
  2. LUPRON DEPOT [Suspect]
     Indication: ENDOMETRIOSIS
     Route: 030
     Dates: start: 20050215, end: 20050316
  3. PREDNISONE [Suspect]
     Indication: ANAPHYLACTOID REACTION
     Route: 042
     Dates: start: 20050321, end: 20050321
  4. PREDNISONE [Suspect]
     Route: 048

REACTIONS (8)
  - ANAPHYLACTIC REACTION [None]
  - CHEST PAIN [None]
  - DIZZINESS [None]
  - DYSGEUSIA [None]
  - ELECTROCARDIOGRAM ST SEGMENT ELEVATION [None]
  - PARAESTHESIA [None]
  - PRURITUS GENERALISED [None]
  - SWOLLEN TONGUE [None]
